FAERS Safety Report 9198786 (Version 1)
Quarter: 2013Q1

REPORT INFORMATION
  Report Type: Spontaneous
  Country: IT (occurrence: IT)
  Receive Date: 20130329
  Receipt Date: 20130329
  Transmission Date: 20140127
  Serious: Yes (Other)
  Sender: FDA-Public Use
  Company Number: IT-PFIZER INC-2013098797

PATIENT
  Age: 70 Year
  Sex: Male

DRUGS (7)
  1. NITROGLYCERIN [Suspect]
     Indication: CHEST PAIN
     Dosage: 5 MG, TOTAL DOSE
     Route: 062
     Dates: start: 20121221, end: 20121221
  2. LUCEN [Concomitant]
  3. KARVEZIDE [Concomitant]
  4. METFORAL [Concomitant]
  5. CARDIOASPIRIN [Concomitant]
  6. DOXAZOSIN MESILATE [Concomitant]
  7. CARVEDILOL [Concomitant]

REACTIONS (5)
  - Syncope [Recovering/Resolving]
  - Facial bones fracture [Recovering/Resolving]
  - Tendon disorder [Recovering/Resolving]
  - Vertigo [Recovering/Resolving]
  - Vision blurred [Recovering/Resolving]
